FAERS Safety Report 6991831-2 (Version None)
Quarter: 2010Q3

REPORT INFORMATION
  Report Type: 
  Country: None (occurrence: None)
  Receive Date: 20100804
  Receipt Date: 20100804
  Transmission Date: 20110219
  Serious: Yes (Life-Threatening, Hospitalization)
  Sender: FDA-Public Use
  Company Number: None

PATIENT
  Age: 63 Year
  Sex: Female
  Weight: 63.05 kg

DRUGS (1)
  1. EQUATE HAIR REGROWTH TREATMENT [Suspect]
     Indication: ALOPECIA
     Dosage: BY INCLOSED DROPPER AM AND PM TOP HEAD
     Route: 061
     Dates: start: 20100318, end: 20100520

REACTIONS (4)
  - ASTHENIA [None]
  - DIZZINESS [None]
  - FEAR [None]
  - PALPITATIONS [None]
